FAERS Safety Report 9341592 (Version 2)
Quarter: 2013Q2

REPORT INFORMATION
  Report Type: Spontaneous
  Country: US (occurrence: None)
  Receive Date: 20130606
  Receipt Date: 20130612
  Transmission Date: 20140414
  Serious: Yes (Hospitalization, Other)
  Sender: FDA-Public Use
  Company Number: ADR-2013-00937

PATIENT
  Age: 52 Year
  Sex: Male

DRUGS (2)
  1. LIORESAL INTRATHECAL (BACLOFEN INJECTION) 500 MCG/ML [Suspect]
     Indication: MUSCLE SPASTICITY
  2. BACLOFEN [Concomitant]

REACTIONS (10)
  - Escherichia infection [None]
  - Constipation [None]
  - Decubitus ulcer [None]
  - Osteomyelitis [None]
  - Sepsis [None]
  - Osteomyelitis [None]
  - Device battery issue [None]
  - Hyperhidrosis [None]
  - Muscle spasms [None]
  - Hypotension [None]
